FAERS Safety Report 17779287 (Version 7)
Quarter: 2024Q2

REPORT INFORMATION
  Report Type: Spontaneous
  Country: PL (occurrence: PL)
  Receive Date: 20200513
  Receipt Date: 20240503
  Transmission Date: 20240715
  Serious: Yes (Death, Hospitalization, Other)
  Sender: FDA-Public Use
  Company Number: PL-REGENERON PHARMACEUTICALS, INC.-2020-24315

PATIENT
  Age: 66 Year
  Sex: Male
  Weight: 79.5 kg

DRUGS (3)
  1. CARBOPLATIN [Suspect]
     Active Substance: CARBOPLATIN
     Indication: Non-small cell lung cancer stage IV
     Dosage: UNK (AUC OF 5 MG/ML/MINUTE)
     Route: 042
     Dates: start: 20191210, end: 20200218
  2. CEMIPLIMAB [Suspect]
     Active Substance: CEMIPLIMAB
     Indication: Non-small cell lung cancer stage IV
     Dosage: 350 MG, EVERY 3 WEEKS
     Route: 042
     Dates: start: 20191210, end: 20200218
  3. PEMETREXED DISODIUM [Suspect]
     Active Substance: PEMETREXED DISODIUM
     Indication: Non-small cell lung cancer stage IV
     Dosage: 500 MG/M2, EVERY 3 WEEKS
     Route: 042
     Dates: start: 20191210, end: 20200218

REACTIONS (6)
  - Neoplasm progression [Fatal]
  - Anaemia [Fatal]
  - Circulatory collapse [Fatal]
  - Respiratory failure [Fatal]
  - General physical health deterioration [Fatal]
  - Off label use [Unknown]

NARRATIVE: CASE EVENT DATE: 20191210
